FAERS Safety Report 5477691-X (Version None)
Quarter: 2007Q4

REPORT INFORMATION
  Report Type: 
  Country: None (occurrence: None)
  Receive Date: 20071003
  Receipt Date: 20071003
  Transmission Date: 20080405
  Serious: Yes (Hospitalization)
  Sender: FDA-Public Use
  Company Number: None

PATIENT
  Age: 39 Year
  Sex: Female
  Weight: 81.6475 kg

DRUGS (1)
  1. YAZ [Suspect]
     Indication: PREMENSTRUAL SYNDROME
     Dosage: ONE PILL DAILY  PO
     Route: 048
     Dates: start: 20070707, end: 20070909

REACTIONS (4)
  - IMPAIRED WORK ABILITY [None]
  - MENORRHAGIA [None]
  - PNEUMONIA [None]
  - PULMONARY THROMBOSIS [None]
